FAERS Safety Report 9624891 (Version 2)
Quarter: 2014Q1

REPORT INFORMATION
  Report Type: Spontaneous
  Country: NO (occurrence: NO)
  Receive Date: 20131016
  Receipt Date: 20140113
  Transmission Date: 20141002
  Serious: Yes (Life-Threatening, Hospitalization)
  Sender: FDA-Public Use
  Company Number: PHHY2013NO111147

PATIENT
  Age: 72 Year
  Sex: Male

DRUGS (41)
  1. FENTANYL [Suspect]
     Indication: SEDATION
     Dosage: 250 UG, UNK
     Dates: start: 20130426, end: 20130430
  2. PROPOFOL [Suspect]
     Indication: CONVULSION
     Dosage: 50 MG, 10QD (50 MG X APPROXIMATELY 10 PER DAY)
     Dates: start: 20130427, end: 20130428
  3. MIDAZOLAM [Suspect]
     Indication: SEDATION
     Dosage: 10 MG/H (26/4-27/4: 10 MG/H, 27/4-28/4: 7 MG/H, 28/4-29/4: 3 MG/H)
     Dates: start: 20130426, end: 20130429
  4. AMINOPHYLLINE [Interacting]
     Indication: ASTHMA
     Dosage: 50 MG/H (50-25 MG/H)
     Dates: start: 20130516, end: 20130520
  5. CATAPRESAN /NET/ [Suspect]
     Indication: SEDATION
     Dosage: 60 UG, UNK
     Dates: start: 20130502, end: 20130509
  6. ANEXATE [Suspect]
     Indication: REVERSAL OF SEDATION
     Dosage: 0.5 MG, TID
     Dates: start: 20130516, end: 20130516
  7. STESOLID [Suspect]
     Indication: CONVULSION
     Dosage: 5 MG, 5QD
     Dates: start: 20130429, end: 20130503
  8. DEXDOR [Suspect]
     Indication: SEDATION
     Dosage: 10 OT, UNK
     Dates: start: 20130428, end: 20130501
  9. DIFLUCAN [Interacting]
     Indication: FUNGAL INFECTION
     Dosage: 800 MG (6/5: 800 MG X 1, 7/5-20/5: 400 MG X 1, 21/5-22/5: 200 MG X 1)
     Dates: start: 20130506, end: 20130522
  10. PRO-EPANUTIN [Interacting]
     Indication: CONVULSION
     Dosage: 300 MG (30/4: 2000MG BOLUS, 1/5: 300MG FNE X 2, 2/5-10/5: 400MG FNE X 2, 11/5: 300MG FNE X 2, 12/5)
     Dates: start: 20130430, end: 20130512
  11. VANCOMYCIN [Concomitant]
     Indication: INFECTION
     Dosage: 1 MG, BID
     Dates: start: 20130516, end: 20130522
  12. SULFAMETHOXAZOLE AND TRIMETHOPRIM [Concomitant]
     Indication: INFECTION
     Dosage: 160 MG, BID
     Route: 048
     Dates: start: 20130517, end: 20130518
  13. DALACIN [Concomitant]
     Indication: INFECTION
     Dosage: 600 MG, TID
     Dates: start: 20130428, end: 20130428
  14. DIAMOX                                  /CAN/ [Concomitant]
     Indication: METABOLIC ALKALOSIS
     Dosage: 250 MG, BID
     Dates: start: 20130427, end: 20130430
  15. KAJOS [Concomitant]
     Indication: MINERAL SUPPLEMENTATION
     Dosage: 30 ML, TID
     Route: 048
     Dates: start: 20130501, end: 20130517
  16. SPIRIX [Concomitant]
     Indication: DIURETIC THERAPY
     Dosage: 50 MG, QD
     Dates: start: 20130503, end: 20130522
  17. VENTOLINE [Concomitant]
     Indication: ASTHMA
     Dosage: 5 MG, 6QD
     Dates: start: 20130426, end: 20130522
  18. RELISTOR [Concomitant]
     Dosage: 12 MG, UNK
     Dates: start: 20130427, end: 20130430
  19. NOREPINEPHRINE [Concomitant]
     Indication: VASOPRESSIVE THERAPY
  20. ESIDREX [Concomitant]
     Dosage: 25 MG, QD
     Dates: start: 20130430, end: 20130507
  21. NALOXONE [Concomitant]
     Dosage: 0.4 MG, QD
     Dates: start: 20130516, end: 20130516
  22. POTASSIUM CHLORIDE [Concomitant]
     Indication: MINERAL SUPPLEMENTATION
     Dosage: 20 MMOL, UNK
     Route: 048
     Dates: start: 20130517, end: 20130522
  23. SINGULAIR [Concomitant]
     Indication: ASTHMA
     Dosage: 10 MG, QD
     Dates: start: 20130513, end: 20130522
  24. ACTRAPID PENFILL [Concomitant]
     Indication: BLOOD GLUCOSE ABNORMAL
     Dosage: 1 IU/ML, UNK
     Dates: start: 20130426, end: 20130522
  25. AFIPRAN [Concomitant]
     Dosage: 10 MG, TID
     Dates: start: 20130427, end: 20130504
  26. RIVOTRIL [Concomitant]
     Indication: EPILEPSY
     Dosage: 0.5 MG, QID
     Dates: start: 20130509, end: 20130516
  27. BACTRIM [Concomitant]
     Indication: INFECTION
     Dosage: 20 ML, BID
     Dates: start: 20130519, end: 20130522
  28. CETIRIZINE [Concomitant]
     Indication: HYPERSENSITIVITY
     Dosage: 10 ML, QD
     Dates: start: 20130507, end: 20130522
  29. FRAGMIN [Concomitant]
     Indication: THROMBOSIS PROPHYLAXIS
     Dosage: 2500-5000 IU X 1
     Dates: start: 20130428, end: 20130522
  30. SOMAC [Concomitant]
     Indication: PROPHYLAXIS AGAINST GASTROINTESTINAL ULCER
     Dosage: 40 MG, QD
     Dates: start: 20130426, end: 20130522
  31. KLEXANE [Concomitant]
     Indication: THROMBOSIS PROPHYLAXIS
     Dosage: 40 MG, QD
     Dates: start: 20130426, end: 20130427
  32. ATROVENT [Concomitant]
     Indication: ASTHMA
     Dosage: 0.5 MG, 6QD
     Dates: start: 20130426, end: 20130522
  33. SOLU-CORTEF [Concomitant]
     Indication: ASTHMA
     Dosage: 100 MG, BID
     Dates: start: 20130426, end: 20130521
  34. MERONEM [Concomitant]
     Indication: INFECTION
     Dosage: 1 G, TID
     Dates: start: 20130505, end: 20130512
  35. BURINEX [Concomitant]
     Dosage: 1 MG, TID
     Dates: start: 20130505, end: 20130522
  36. CEFUROX//CEFUROXIME SODIUM [Concomitant]
     Indication: INFECTION
     Dosage: 750 MG, TID
     Dates: start: 20130426, end: 20130501
  37. LAXOBERAL [Concomitant]
     Dosage: 10-15 GTT X 1-2
     Dates: start: 20130427, end: 20130522
  38. KEPPRA [Concomitant]
     Indication: EPILEPSY
     Dosage: 500 MG, BID
     Dates: start: 20130508, end: 20130522
  39. DIAMOX                                  /NET/ [Concomitant]
     Indication: METABOLIC ALKALOSIS
     Dosage: 250 MG, BID
     Dates: start: 20130427, end: 20130430
  40. SULFAMETHOXAZOLE W/TRIMETHOPRIM [Concomitant]
     Indication: INFECTION
     Dosage: 160 MG, BID
     Route: 048
     Dates: start: 20130517, end: 20130518
  41. CEFUROXIM CT [Concomitant]
     Indication: INFECTION
     Dosage: 750 MG, TID
     Dates: start: 20130426, end: 20130501

REACTIONS (3)
  - Coma [Recovered/Resolved]
  - Drug effect prolonged [Recovered/Resolved]
  - Drug interaction [Recovered/Resolved]
